FAERS Safety Report 14503245 (Version 2)
Quarter: 2018Q3

REPORT INFORMATION
  Report Type: Report from Study
  Country: US (occurrence: US)
  Receive Date: 20180208
  Receipt Date: 20180724
  Transmission Date: 20181010
  Serious: Yes (Other)
  Sender: FDA-Public Use
  Company Number: US-ROCHE-2064279

PATIENT
  Age: 69 Year
  Sex: Female
  Weight: 72.64 kg

DRUGS (3)
  1. ERIVEDGE [Suspect]
     Active Substance: VISMODEGIB
     Indication: NEOPLASM MALIGNANT
     Route: 048
     Dates: start: 201711
  2. ERIVEDGE [Suspect]
     Active Substance: VISMODEGIB
     Indication: BASAL CELL CARCINOMA
  3. ERIVEDGE [Suspect]
     Active Substance: VISMODEGIB
     Indication: BASAL CELL CARCINOMA

REACTIONS (8)
  - Dysgeusia [Unknown]
  - Decreased appetite [Not Recovered/Not Resolved]
  - Arthralgia [Unknown]
  - Ageusia [Unknown]
  - Paralysis [Unknown]
  - Muscle contractions involuntary [Unknown]
  - Visual impairment [Unknown]
  - Ageusia [Not Recovered/Not Resolved]

NARRATIVE: CASE EVENT DATE: 201801
